FAERS Safety Report 5011714-7 (Version None)
Quarter: 2006Q2

REPORT INFORMATION
  Report Type: 
  Country: None (occurrence: None)
  Receive Date: 20060526
  Receipt Date: 20060518
  Transmission Date: 20061013
  Serious: Yes (Hospitalization)
  Sender: FDA-Public Use
  Company Number: US-JNJFOC-20060504238

PATIENT
  Sex: Female
  Weight: 68.04 kg

DRUGS (19)
  1. REMICADE [Suspect]
     Indication: RHEUMATOID ARTHRITIS
     Route: 042
  2. PLAVIX [Concomitant]
  3. METHOTREXATE [Concomitant]
  4. LEVOTHROXINE [Concomitant]
  5. FOLATE [Concomitant]
  6. LORATADINE [Concomitant]
  7. LISINOPRIL [Concomitant]
     Dosage: 10/12.5 MG DAILY
  8. TYLENOL (GELTAB) [Concomitant]
  9. MULTI-VITAMIN [Concomitant]
  10. MULTI-VITAMIN [Concomitant]
  11. MULTI-VITAMIN [Concomitant]
  12. MULTI-VITAMIN [Concomitant]
  13. MULTI-VITAMIN [Concomitant]
  14. MULTI-VITAMIN [Concomitant]
  15. MULTI-VITAMIN [Concomitant]
  16. MULTI-VITAMIN [Concomitant]
  17. CALCIUM WITH VITAMIN D [Concomitant]
  18. CALCIUM WITH VITAMIN D [Concomitant]
  19. CALCIUM WITH VITAMIN D [Concomitant]

REACTIONS (2)
  - ANEURYSM [None]
  - VASCULAR PSEUDOANEURYSM [None]
